FAERS Safety Report 25431666 (Version 1)
Quarter: 2025Q2

REPORT INFORMATION
  Report Type: Spontaneous
  Country: AU (occurrence: AU)
  Receive Date: 20250613
  Receipt Date: 20250613
  Transmission Date: 20250717
  Serious: Yes (Other)
  Sender: ASCEND THERAPEUTICS US, LLC
  Company Number: AU-Ascend Therapeutics US, LLC-2178520

PATIENT
  Age: 31 Year
  Sex: Female

DRUGS (2)
  1. ANDROGEL [Suspect]
     Active Substance: TESTOSTERONE
     Indication: Transgender hormonal therapy
  2. TESTOSTERONE [Suspect]
     Active Substance: TESTOSTERONE

REACTIONS (3)
  - Cervix disorder [Unknown]
  - Off label use [Unknown]
  - Mesonephric duct cyst [Unknown]
